FAERS Safety Report 10212018 (Version 2)
Quarter: 2014Q3

REPORT INFORMATION
  Report Type: Spontaneous
  Country: US (occurrence: US)
  Receive Date: 20140602
  Receipt Date: 20140707
  Transmission Date: 20150326
  Serious: No
  Sender: FDA-Public Use
  Company Number: US-AMGEN-USASP2014034276

PATIENT
  Age: 60 Year
  Sex: Female
  Weight: 71.66 kg

DRUGS (9)
  1. ENBREL [Suspect]
     Active Substance: ETANERCEPT
     Indication: RHEUMATOID ARTHRITIS
     Dosage: 50 MG, QWK
     Route: 065
     Dates: start: 20041001
  2. ASPIRIN. [Concomitant]
     Active Substance: ASPIRIN
     Dosage: 81 MG, UNK
  3. CALCIUM + VIT D [Concomitant]
     Active Substance: CALCIUM\VITAMIN D
     Dosage: 1200 UNK, QD
  4. METFORMIN [Concomitant]
     Active Substance: METFORMIN HYDROCHLORIDE
     Dosage: 850 MG, QD
  5. VITAMIN D3 [Concomitant]
     Active Substance: CHOLECALCIFEROL
     Dosage: 1000 UNIT, QD
  6. FOLIC ACID. [Concomitant]
     Active Substance: FOLIC ACID
     Dosage: 1 MG, QD
  7. LEVOTHYROXINE SODIUM. [Concomitant]
     Active Substance: LEVOTHYROXINE SODIUM
     Dosage: 75 MUG, QD
  8. METHOTREXATE SODIUM. [Concomitant]
     Active Substance: METHOTREXATE SODIUM
     Dosage: 10 MG, QWK
  9. LISINOPRIL AND HYDROCHLOROTHIAZIDE [Concomitant]
     Active Substance: HYDROCHLOROTHIAZIDE\LISINOPRIL
     Dosage: 10-12.5 MG, QD

REACTIONS (16)
  - Arthralgia [Unknown]
  - Pain in extremity [Unknown]
  - Crepitations [Unknown]
  - Hand deformity [Unknown]
  - Limb discomfort [Unknown]
  - Ankle deformity [Unknown]
  - Musculoskeletal stiffness [Unknown]
  - Grip strength decreased [Unknown]
  - Injection site pruritus [Not Recovered/Not Resolved]
  - Erythema [Unknown]
  - Kyphosis [Unknown]
  - Spinal deformity [Unknown]
  - Injection site pain [Not Recovered/Not Resolved]
  - Synovial disorder [Unknown]
  - Joint swelling [Unknown]
  - Joint range of motion decreased [Unknown]
